FAERS Safety Report 8235162-1 (Version None)
Quarter: 2012Q1

REPORT INFORMATION
  Report Type: 
  Country: None (occurrence: None)
  Receive Date: 20120326
  Receipt Date: 20120314
  Transmission Date: 20120608
  Serious: Yes (Hospitalization)
  Sender: FDA-Public Use
  Company Number: CH-ROCHE-1025192

PATIENT
  Age: 72 Year
  Sex: Male

DRUGS (12)
  1. ALLOPURINOL [Concomitant]
     Route: 048
     Dates: start: 20111219
  2. GLUCOPHAGE [Concomitant]
     Route: 048
     Dates: start: 20111101
  3. SIMVASTATIN [Concomitant]
     Route: 048
  4. DEXAMETHASONE [Concomitant]
     Route: 048
     Dates: start: 20111219
  5. MABTHERA [Suspect]
     Indication: B-CELL LYMPHOMA
     Dosage: DATE OF LAST DOSE PRIOR TO SAE: 13/FEB/2012
     Route: 042
     Dates: start: 20111219
  6. LENALIDOMIDE [Suspect]
     Dosage: DATE OF LAST DOSE PRIOR TO SAE: 17/FEB/2012
     Route: 048
     Dates: start: 20120131
  7. BENDAMUSTINE [Suspect]
     Indication: B-CELL LYMPHOMA
     Dosage: DATE OF LAST DOSE PRIOR TO SAE: 14/FEB/2012
     Route: 042
     Dates: start: 20111219
  8. LENALIDOMIDE [Suspect]
     Indication: B-CELL LYMPHOMA
     Dosage: DATE OF LAST DOSE PRIOR TO SAE: 24/JAN/2012
     Route: 048
     Dates: start: 20111219, end: 20120125
  9. PAROXETINE HCL [Concomitant]
     Route: 048
  10. FRAXIFORTE [Concomitant]
     Route: 058
     Dates: start: 20120207, end: 20120217
  11. ASPIRIN [Concomitant]
     Route: 048
  12. ASPIRIN [Concomitant]
     Dates: start: 20120206

REACTIONS (7)
  - ATRIAL FLUTTER [None]
  - LUNG INFECTION [None]
  - VITREOUS HAEMORRHAGE [None]
  - ARRHYTHMIA SUPRAVENTRICULAR [None]
  - NODAL ARRHYTHMIA [None]
  - SUPRAVENTRICULAR TACHYARRHYTHMIA [None]
  - PNEUMONIA [None]
